FAERS Safety Report 9914291 (Version 1)
Quarter: 2014Q1

REPORT INFORMATION
  Report Type: Spontaneous
  Country: US (occurrence: None)
  Receive Date: 20140219
  Receipt Date: 20140219
  Transmission Date: 20141002
  Serious: Yes (Other)
  Sender: FDA-Public Use
  Company Number: None

PATIENT
  Age: 36 Year
  Sex: Female
  Weight: 65.77 kg

DRUGS (6)
  1. LYRICA [Suspect]
     Indication: MYALGIA
     Dosage: 1 CAPSULE
     Route: 048
     Dates: start: 20140218
  2. LITHIUM [Concomitant]
  3. LAMICTAL [Concomitant]
  4. BIRTH CONTROL PILL [Concomitant]
  5. ACETAMINOPHEN [Concomitant]
  6. IBUPROFEN [Concomitant]

REACTIONS (9)
  - Tremor [None]
  - Feeling abnormal [None]
  - Dizziness [None]
  - Palpitations [None]
  - Muscle spasms [None]
  - Accidental overdose [None]
  - Muscle twitching [None]
  - Movement disorder [None]
  - Trismus [None]
